FAERS Safety Report 22536172 (Version 1)
Quarter: 2023Q2

REPORT INFORMATION
  Report Type: Spontaneous
  Country: US (occurrence: None)
  Receive Date: 20230607
  Receipt Date: 20230607
  Transmission Date: 20230722
  Serious: No
  Sender: FDA-Public Use
  Company Number: None

PATIENT
  Sex: Male
  Weight: 60.78 kg

DRUGS (5)
  1. ABIRATERONE [Suspect]
     Active Substance: ABIRATERONE
     Indication: Prostate cancer
     Dosage: FREQUENCY : DAILY;?
     Route: 048
  2. PREDNISONE [Suspect]
     Active Substance: PREDNISONE
     Indication: Prostate cancer
     Dosage: FREQUENCY : TWICE A DAY;?
     Route: 048
  3. CALCIUM [Concomitant]
     Active Substance: CALCIUM
  4. DOCUSATE [Concomitant]
     Active Substance: DOCUSATE
  5. MOTRIN [Concomitant]

REACTIONS (2)
  - Vomiting [None]
  - Hernia repair [None]
